FAERS Safety Report 5684676-7 (Version None)
Quarter: 2008Q1

REPORT INFORMATION
  Report Type: 
  Country: None (occurrence: None)
  Receive Date: 20080328
  Receipt Date: 20070601
  Transmission Date: 20080703
  Serious: No
  Sender: FDA-Public Use
  Company Number: US-BRISTOL-MYERS SQUIBB COMPANY-13800461

PATIENT
  Sex: Female

DRUGS (5)
  1. ERBITUX [Suspect]
  2. DEXAMETHASONE TAB [Concomitant]
  3. BENADRYL [Concomitant]
  4. TYLENOL (CAPLET) [Concomitant]
  5. AVASTIN [Concomitant]

REACTIONS (1)
  - DERMATITIS ACNEIFORM [None]
